FAERS Safety Report 8033198-7 (Version None)
Quarter: 2011Q4

REPORT INFORMATION
  Report Type: 
  Country: None (occurrence: None)
  Receive Date: 20111228
  Receipt Date: 20111214
  Transmission Date: 20120403
  Serious: Yes (Hospitalization, Other)
  Sender: FDA-Public Use
  Company Number: 2011SP058672

PATIENT
  Sex: Female

DRUGS (3)
  1. RIBAVIRIN [Suspect]
     Indication: HEPATITIS C
     Dates: start: 20110808, end: 20110930
  2. PEGASYS [Suspect]
     Indication: HEPATITIS C
     Dates: start: 20110808, end: 20110930
  3. BOCEPREVIR [Suspect]
     Indication: HEPATITIS C
     Dates: start: 20110905, end: 20110930

REACTIONS (8)
  - EPISTAXIS [None]
  - SKIN ATROPHY [None]
  - DIARRHOEA [None]
  - APHAGIA [None]
  - ABDOMINAL PAIN [None]
  - MALAISE [None]
  - WEIGHT DECREASED [None]
  - DEHYDRATION [None]
